FAERS Safety Report 7066407-1 (Version None)
Quarter: 2010Q4

REPORT INFORMATION
  Report Type: 
  Country: None (occurrence: None)
  Receive Date: 20101027
  Receipt Date: 20091118
  Transmission Date: 20110411
  Serious: Yes (Hospitalization)
  Sender: FDA-Public Use
  Company Number: US-WYE-H11688709

PATIENT
  Sex: Female
  Weight: 87.62 kg

DRUGS (9)
  1. PREMPRO [Suspect]
     Indication: HORMONE REPLACEMENT THERAPY
     Dosage: 0.3/1.5 MG AT AN UNSPECIFIED FREQUENCY
     Route: 048
     Dates: start: 19990101, end: 20090909
  2. PEXEVA [Concomitant]
     Dosage: 20MG AT AN UNSPECIFIED FREQUENCY
     Route: 065
  3. SEROQUEL [Concomitant]
     Dosage: 25MG AT AN UNSPECIFIED FREQUENCY
     Route: 065
  4. SIMVASTATIN [Concomitant]
     Dosage: 20MG AT AN UNSPECIFIED FREQUENCY
     Route: 065
  5. AVAPRO [Concomitant]
     Dosage: 150MG AT AN UNSPECIFIED FREQUENCY
     Route: 065
  6. HYDROCHLOROTHIAZIDE [Concomitant]
     Dosage: 25MG AT AN UNSPECIFIED FREQUENCY
     Route: 065
  7. CELEBREX [Concomitant]
     Dosage: 200MG AT AN UNSPECIFIED FREQUENCY
     Route: 065
  8. LORAZEPAM [Concomitant]
     Dosage: 1MG AT AN UNSPECIFIED FREQUENCY
     Route: 065
  9. OMEPRAZOLE [Concomitant]
     Dosage: 20 MG AT AN UNSPECIFIED FREQUENCY
     Route: 065

REACTIONS (3)
  - POSTMENOPAUSAL HAEMORRHAGE [None]
  - PULMONARY EMBOLISM [None]
  - THROMBOSIS [None]
